FAERS Safety Report 21955699 (Version 3)
Quarter: 2024Q1

REPORT INFORMATION
  Report Type: Other
  Country: JP (occurrence: JP)
  Receive Date: 20230206
  Receipt Date: 20240301
  Transmission Date: 20240410
  Serious: Yes (Death, Hospitalization, Other)
  Sender: FDA-Public Use
  Company Number: JP-CHUGAI-2023000827AA

PATIENT
  Age: 69 Year
  Sex: Male
  Weight: 79.5 kg

DRUGS (12)
  1. TECENTRIQ [Suspect]
     Active Substance: ATEZOLIZUMAB
     Indication: Hepatocellular carcinoma
     Dosage: 1200 MILLIGRAM
     Route: 041
     Dates: start: 20210813, end: 20211217
  2. AVASTIN [Suspect]
     Active Substance: BEVACIZUMAB
     Indication: Hepatocellular carcinoma
     Route: 041
     Dates: start: 20210813, end: 20211217
  3. VONOPRAZAN FUMARATE [Concomitant]
     Active Substance: VONOPRAZAN FUMARATE
     Indication: Gastritis
     Dosage: 10 MILLIGRAM, QD
     Route: 048
  4. AMLODIPINE BESYLATE\IRBESARTAN [Concomitant]
     Active Substance: AMLODIPINE BESYLATE\IRBESARTAN
     Indication: Hypertension
     Dosage: UNK, QD
     Route: 048
  5. DAPAGLIFLOZIN [Concomitant]
     Active Substance: DAPAGLIFLOZIN
     Indication: Diabetes mellitus
     Dosage: 5 MILLIGRAM, QD
     Route: 048
  6. URSODIOL [Concomitant]
     Active Substance: URSODIOL
  7. RIFAXIMIN [Concomitant]
     Active Substance: RIFAXIMIN
     Dosage: 400 MILLIGRAM, TID
     Route: 048
  8. LAGNOS NF [Concomitant]
     Dosage: 12 GRAM
     Route: 048
  9. MIYA-BM [Concomitant]
     Active Substance: CLOSTRIDIUM BUTYRICUM SPORES STRAIN M-55
     Dosage: 20 MILLIGRAM, TID
     Route: 048
  10. FUROSEMIDE [Concomitant]
     Active Substance: FUROSEMIDE
     Dosage: 40 MILLIGRAM, BID
     Route: 048
  11. SPIRONOLACTONE [Concomitant]
     Active Substance: SPIRONOLACTONE
     Dosage: 50 MILLIGRAM, BID
     Route: 048
  12. HEPAACT [Concomitant]
     Dosage: 4.5 GRAM, TID
     Route: 048

REACTIONS (14)
  - Interstitial lung disease [Fatal]
  - Osteomyelitis [Not Recovered/Not Resolved]
  - Systemic inflammatory response syndrome [Recovered/Resolved]
  - Beta haemolytic streptococcal infection [Unknown]
  - Acute respiratory distress syndrome [Unknown]
  - Hepatic encephalopathy [Recovered/Resolved]
  - C-reactive protein increased [Unknown]
  - Diarrhoea [Not Recovered/Not Resolved]
  - Back pain [Recovered/Resolved]
  - Abdominal pain [Recovered/Resolved]
  - Dysphonia [Not Recovered/Not Resolved]
  - Fatigue [Recovered/Resolved]
  - Rash [Unknown]
  - Hypertension [Not Recovered/Not Resolved]

NARRATIVE: CASE EVENT DATE: 20211112
